FAERS Safety Report 5959107-X (Version None)
Quarter: 2008Q4

REPORT INFORMATION
  Report Type: 
  Country: None (occurrence: None)
  Receive Date: 20081120
  Receipt Date: 20071130
  Transmission Date: 20090506
  Serious: No
  Sender: FDA-Public Use
  Company Number: A0698621A

PATIENT
  Age: 43 Year
  Sex: Male

DRUGS (2)
  1. BUPROPION HYDROCHLORIDE [Suspect]
     Indication: DEPRESSION
     Dosage: 200MG TWICE PER DAY
     Route: 048
  2. VITAMINS [Concomitant]

REACTIONS (2)
  - PRODUCT QUALITY ISSUE [None]
  - SEDATION [None]
